FAERS Safety Report 10100882 (Version 4)
Quarter: 2014Q2

REPORT INFORMATION
  Report Type: Report from Study
  Country: FR (occurrence: FR)
  Receive Date: 20140423
  Receipt Date: 20140630
  Transmission Date: 20141212
  Serious: Yes (Hospitalization, Other)
  Sender: FDA-Public Use
  Company Number: FR-ONYX-2014-0862

PATIENT
  Age: 50 Year
  Sex: Male

DRUGS (8)
  1. CARFILZOMIB [Suspect]
     Indication: PLASMA CELL MYELOMA
     Route: 042
     Dates: start: 20140408, end: 20140409
  2. LENALIDOMIDE [Concomitant]
     Dates: start: 20140408, end: 20140415
  3. DEXAMETHASONE [Concomitant]
     Dates: start: 20140408, end: 20140409
  4. ZELITREX [Concomitant]
     Indication: PRODUCT USED FOR UNKNOWN INDICATION
     Dates: start: 20140408
  5. BACTRIM [Concomitant]
     Indication: PRODUCT USED FOR UNKNOWN INDICATION
     Dates: start: 20140408
  6. INEXIUM [Concomitant]
     Indication: PRODUCT USED FOR UNKNOWN INDICATION
     Dates: start: 20140408
  7. LOVENOX [Concomitant]
     Indication: PRODUCT USED FOR UNKNOWN INDICATION
     Dates: start: 20140408
  8. ATENOLOL [Concomitant]
     Indication: HYPERTENSION

REACTIONS (1)
  - Bradycardia [Recovered/Resolved]
